FAERS Safety Report 5828334-4 (Version None)
Quarter: 2008Q3

REPORT INFORMATION
  Report Type: 
  Country: None (occurrence: None)
  Receive Date: 20080731
  Receipt Date: 20080722
  Transmission Date: 20090109
  Serious: Yes (Other)
  Sender: FDA-Public Use
  Company Number: US-RB-000820-08

PATIENT
  Sex: Female

DRUGS (17)
  1. SUBOXONE [Suspect]
     Route: 060
     Dates: start: 20080326, end: 20080326
  2. SUBOXONE [Suspect]
     Route: 060
     Dates: start: 20080327, end: 20080327
  3. REQUIP [Suspect]
  4. ASPIRIN [Concomitant]
     Indication: DRUG USE FOR UNKNOWN INDICATION
     Route: 048
  5. EFFEXOR XR [Concomitant]
     Indication: DRUG USE FOR UNKNOWN INDICATION
     Route: 048
  6. SEROQUEL [Concomitant]
     Indication: DRUG USE FOR UNKNOWN INDICATION
     Route: 048
  7. IMITREX [Concomitant]
     Indication: HEADACHE
     Dosage: 1 TABLET DAILY AS NEEDED
     Route: 048
  8. VYTORIN [Concomitant]
     Indication: DRUG USE FOR UNKNOWN INDICATION
     Dosage: VITORIN 10/40 1 @ HS
     Route: 048
  9. ZANAFLEX [Concomitant]
     Indication: DRUG USE FOR UNKNOWN INDICATION
     Dosage: 8MG EVERY 8 HOURS AS NEEDED
     Route: 048
  10. VITAMIN B-12 [Concomitant]
     Indication: DRUG USE FOR UNKNOWN INDICATION
     Dosage: 1 CC IM MONTHY
     Route: 030
  11. NIASPAN [Concomitant]
     Indication: DRUG USE FOR UNKNOWN INDICATION
     Route: 048
  12. ACTOPLUS MET [Concomitant]
     Indication: DRUG USE FOR UNKNOWN INDICATION
     Dosage: 50MG/500MG 1 TABLET IN THE AM AND 1 TABLET IN THE PM
     Route: 048
  13. PREDNISONE [Concomitant]
     Indication: DRUG USE FOR UNKNOWN INDICATION
     Route: 048
  14. ACTONEL [Concomitant]
     Indication: DRUG USE FOR UNKNOWN INDICATION
  15. CALTRATE D [Concomitant]
     Indication: DRUG USE FOR UNKNOWN INDICATION
     Route: 048
  16. LASIX [Concomitant]
     Indication: DRUG USE FOR UNKNOWN INDICATION
     Dosage: 40MG DAILY, HOLD M-W-FRI
  17. K-DUR [Concomitant]
     Indication: DRUG USE FOR UNKNOWN INDICATION
     Dosage: 1 TABLET DAILY, HOLD ON M-W-FRI

REACTIONS (3)
  - ABASIA [None]
  - APHASIA [None]
  - PSYCHOMOTOR SKILLS IMPAIRED [None]
